FAERS Safety Report 4756523-9 (Version None)
Quarter: 2005Q3

REPORT INFORMATION
  Report Type: 
  Country: None (occurrence: None)
  Receive Date: 20050830
  Receipt Date: 20050721
  Transmission Date: 20060218
  Serious: No
  Sender: FDA-Public Use
  Company Number: US-GLAXOSMITHKLINE-A0567199A

PATIENT
  Age: 25 Year
  Sex: Female

DRUGS (4)
  1. WELLBUTRIN XL [Suspect]
     Indication: DEPRESSION
     Dosage: 300MGK PER DAY
     Route: 048
     Dates: start: 20050501
  2. LEXAPRO [Concomitant]
  3. AMBIEN [Concomitant]
  4. BIRTH CONTROL [Concomitant]
     Route: 048

REACTIONS (1)
  - URTICARIA [None]
